FAERS Safety Report 24372044 (Version 1)
Quarter: 2024Q3

REPORT INFORMATION
  Report Type: Spontaneous
  Country: US (occurrence: None)
  Receive Date: 20240925
  Receipt Date: 20240925
  Transmission Date: 20241017
  Serious: Yes (Other)
  Sender: Public
  Company Number: None

PATIENT
  Age: 69 Year
  Sex: Female

DRUGS (1)
  1. KISQALI [Suspect]
     Active Substance: RIBOCICLIB
     Indication: Breast cancer
     Dosage: FREQUENCY : 3 TIMES A DAY;?
     Route: 048

REACTIONS (4)
  - Fatigue [None]
  - Decreased appetite [None]
  - Enzyme level increased [None]
  - Therapy cessation [None]

NARRATIVE: CASE EVENT DATE: 20240925
